FAERS Safety Report 4632436-8 (Version None)
Quarter: 2005Q2

REPORT INFORMATION
  Report Type: 
  Country: None (occurrence: None)
  Receive Date: 20050411
  Receipt Date: 20050304
  Transmission Date: 20051028
  Serious: Yes (Other)
  Sender: FDA-Public Use
  Company Number: PHRM2005FR01006

PATIENT
  Age: 56 Year
  Sex: Male

DRUGS (2)
  1. TEGRETOL [Suspect]
     Indication: MOOD SWINGS
  2. ORAP [Concomitant]
     Dosage: 1 DF, QD
     Route: 048

REACTIONS (3)
  - PROSTATECTOMY [None]
  - PROSTATIC SPECIFIC ANTIGEN INCREASED [None]
  - URINARY RETENTION [None]
